FAERS Safety Report 10161378 (Version 1)
Quarter: 2014Q2

REPORT INFORMATION
  Report Type: Report from Study
  Country: FR (occurrence: FR)
  Receive Date: 20140509
  Receipt Date: 20140509
  Transmission Date: 20141212
  Serious: Yes (Other)
  Sender: FDA-Public Use
  Company Number: FR-ROCHE-1396287

PATIENT
  Sex: Male

DRUGS (17)
  1. RITUXIMAB [Suspect]
     Indication: RHEUMATOID ARTHRITIS
     Dosage: DAY 1
     Route: 041
     Dates: start: 20080826
  2. RITUXIMAB [Suspect]
     Dosage: DAY 15
     Route: 041
     Dates: start: 20080909
  3. RITUXIMAB [Suspect]
     Dosage: DAY 1
     Route: 041
     Dates: start: 20090403
  4. RITUXIMAB [Suspect]
     Dosage: DAY 15
     Route: 041
     Dates: start: 20090417
  5. RITUXIMAB [Suspect]
     Dosage: DAY 1
     Route: 041
     Dates: start: 20091118
  6. RITUXIMAB [Suspect]
     Dosage: DAY 15
     Route: 041
     Dates: start: 20091202
  7. RITUXIMAB [Suspect]
     Dosage: DAY 1
     Route: 041
     Dates: start: 20101008
  8. RITUXIMAB [Suspect]
     Dosage: DAY 15
     Route: 041
     Dates: start: 20101022
  9. RITUXIMAB [Suspect]
     Dosage: DAY 1
     Route: 041
     Dates: start: 20110622
  10. RITUXIMAB [Suspect]
     Dosage: DAY 15
     Route: 041
     Dates: start: 20110706
  11. RITUXIMAB [Suspect]
     Dosage: DAY 1
     Route: 041
     Dates: start: 20120626
  12. RITUXIMAB [Suspect]
     Dosage: DAY 15
     Route: 041
     Dates: start: 20120710
  13. RITUXIMAB [Suspect]
     Dosage: DAY 1
     Route: 041
     Dates: start: 20130322
  14. CORTANCYL [Concomitant]
     Route: 065
  15. CORTANCYL [Concomitant]
     Route: 065
  16. CORTANCYL [Concomitant]
     Route: 065
  17. METHOTREXATE [Concomitant]
     Route: 065
     Dates: end: 20120616

REACTIONS (4)
  - Sjogren^s syndrome [Unknown]
  - Rash [Unknown]
  - Pain in extremity [Unknown]
  - Lung infection [Recovered/Resolved]
